FAERS Safety Report 20038250 (Version 4)
Quarter: 2023Q4

REPORT INFORMATION
  Report Type: Report from Study
  Country: US (occurrence: US)
  Receive Date: 20211105
  Receipt Date: 20231113
  Transmission Date: 20240110
  Serious: Yes (Hospitalization, Other)
  Sender: FDA-Public Use
  Company Number: US-BAXTER-2015BAX023574

PATIENT
  Sex: Female

DRUGS (7)
  1. HUMAN IMMUNOGLOBULIN G [Suspect]
     Active Substance: HUMAN IMMUNOGLOBULIN G
     Indication: Primary immunodeficiency syndrome
     Dosage: UNK
     Route: 042
  2. HUMAN IMMUNOGLOBULIN G [Suspect]
     Active Substance: HUMAN IMMUNOGLOBULIN G
     Indication: Primary immunodeficiency syndrome
     Dosage: UNK
     Route: 042
  3. GAMMAGARD LIQUID [Suspect]
     Active Substance: HUMAN IMMUNOGLOBULIN G
     Indication: Primary immunodeficiency syndrome
     Dosage: UNK
     Route: 042
  4. GAMMAGARD LIQUID [Suspect]
     Active Substance: HUMAN IMMUNOGLOBULIN G
     Indication: Selective IgG subclass deficiency
     Dosage: 30 GRAM
     Route: 042
  5. BENADRYL [Concomitant]
     Active Substance: DIPHENHYDRAMINE HYDROCHLORIDE
     Indication: Premedication
     Dosage: UNK
     Route: 065
  6. TYLENOL [Concomitant]
     Active Substance: ACETAMINOPHEN
     Indication: Premedication
     Dosage: UNK
     Route: 065
  7. COMPAZINE [Concomitant]
     Active Substance: PROCHLORPERAZINE MALEATE
     Indication: Premedication
     Dosage: UNK
     Route: 065

REACTIONS (28)
  - Brain oedema [Recovering/Resolving]
  - Brain fog [Recovering/Resolving]
  - Kidney infection [Recovering/Resolving]
  - Thinking abnormal [Recovering/Resolving]
  - Memory impairment [Recovering/Resolving]
  - Loss of consciousness [Recovering/Resolving]
  - Chills [Recovering/Resolving]
  - Anaphylactic shock [Recovering/Resolving]
  - Amnesia [Recovering/Resolving]
  - Craniocerebral injury [Unknown]
  - Fall [Unknown]
  - Hypersomnia [Recovering/Resolving]
  - Product availability issue [Unknown]
  - Pain [Recovering/Resolving]
  - Blood pressure increased [Recovering/Resolving]
  - Headache [Recovering/Resolving]
  - Arthritis [Unknown]
  - Illness [Unknown]
  - Drug ineffective [Unknown]
  - Condition aggravated [Unknown]
  - Nasal congestion [Unknown]
  - Malaise [Unknown]
  - Migraine [Unknown]
  - Influenza like illness [Unknown]
  - Nausea [Unknown]
  - Arthralgia [Unknown]
  - Product preparation issue [Unknown]
  - Incorrect drug administration rate [Unknown]

NARRATIVE: CASE EVENT DATE: 20150101
